FAERS Safety Report 10248481 (Version 2)
Quarter: 2014Q3

REPORT INFORMATION
  Report Type: Spontaneous
  Country: GB (occurrence: GB)
  Receive Date: 20140620
  Receipt Date: 20140905
  Transmission Date: 20150326
  Serious: Yes (Death, Other)
  Sender: FDA-Public Use
  Company Number: GB-BRISTOL-MYERS SQUIBB COMPANY-21035480

PATIENT
  Age: 31 Year
  Sex: Female
  Weight: 87.87 kg

DRUGS (12)
  1. PARAFFIN [Concomitant]
     Active Substance: PARAFFIN
  2. WOOL FAT [Concomitant]
  3. VITAMIN D [Concomitant]
     Active Substance: CHOLECALCIFEROL
  4. COLECALCIFEROL [Concomitant]
     Active Substance: CHOLECALCIFEROL
  5. NICOTINE. [Concomitant]
     Active Substance: NICOTINE
  6. VITAMIN C [Concomitant]
     Active Substance: ASCORBIC ACID
  7. NORETHINDRONE AND ETHINYL ESTRADIOL [Suspect]
     Active Substance: ETHINYL ESTRADIOL\NORETHINDRONE
     Indication: AMENORRHOEA
     Route: 048
     Dates: start: 20140430, end: 20140607
  8. PARACETAMOL [Concomitant]
     Active Substance: ACETAMINOPHEN
     Dosage: INHLAERS
  9. E45 CREAM [Concomitant]
  10. ABILIFY [Suspect]
     Active Substance: ARIPIPRAZOLE
     Indication: SCHIZOPHRENIA
     Route: 048
     Dates: start: 20140114, end: 20140607
  11. ABILIFY [Suspect]
     Active Substance: ARIPIPRAZOLE
     Indication: PARANOIA
     Route: 048
     Dates: start: 20140114, end: 20140607
  12. OILATUM [Concomitant]

REACTIONS (2)
  - Unresponsive to stimuli [Unknown]
  - Pulmonary embolism [Fatal]

NARRATIVE: CASE EVENT DATE: 20140607
